FAERS Safety Report 18590024 (Version 1)
Quarter: 2020Q4

REPORT INFORMATION
  Report Type: Spontaneous
  Country: US (occurrence: US)
  Receive Date: 20201207
  Receipt Date: 20201207
  Transmission Date: 20210114
  Serious: No
  Sender: FDA-Public Use
  Company Number: None

PATIENT
  Age: 52 Year
  Sex: Female
  Weight: 83.88 kg

DRUGS (20)
  1. HYDROMORPHONE [Concomitant]
     Active Substance: HYDROMORPHONE
  2. NASACORT [Concomitant]
     Active Substance: TRIAMCINOLONE ACETONIDE
  3. RHINOCORT [Concomitant]
     Active Substance: BUDESONIDE
  4. LORAZEPAM. [Concomitant]
     Active Substance: LORAZEPAM
  5. TECENTRIQ [Concomitant]
     Active Substance: ATEZOLIZUMAB
  6. CALCIUM +D3 [Concomitant]
     Active Substance: CALCIUM\CHOLECALCIFEROL
  7. DIPHENHYDRAMINE. [Concomitant]
     Active Substance: DIPHENHYDRAMINE
  8. XGEVA [Concomitant]
     Active Substance: DENOSUMAB
  9. METOCLOPRAMIDE. [Concomitant]
     Active Substance: METOCLOPRAMIDE
  10. ONDANSETRON [Concomitant]
     Active Substance: ONDANSETRON
  11. IBRANCE [Suspect]
     Active Substance: PALBOCICLIB
     Indication: BREAST CANCER
     Dosage: ?          OTHER FREQUENCY:DAILY FOR 21/28D;?
     Route: 048
  12. FOLATE [Concomitant]
     Active Substance: FOLATE SODIUM
  13. LEUPROLIDE [Concomitant]
     Active Substance: LEUPROLIDE
  14. ATENOLOL. [Concomitant]
     Active Substance: ATENOLOL
  15. VITAMIN B6 [Concomitant]
     Active Substance: PYRIDOXINE HYDROCHLORIDE
  16. ESCITALOPRAM [Concomitant]
     Active Substance: ESCITALOPRAM OXALATE
  17. FEXOFENADINE [Concomitant]
     Active Substance: FEXOFENADINE HYDROCHLORIDE
  18. LETROZOLE. [Concomitant]
     Active Substance: LETROZOLE
  19. MONTELUKAST [Concomitant]
     Active Substance: MONTELUKAST SODIUM
  20. ZYRTEC [Concomitant]
     Active Substance: CETIRIZINE HYDROCHLORIDE

REACTIONS (3)
  - Diarrhoea [None]
  - Vomiting [None]
  - Liver function test increased [None]

NARRATIVE: CASE EVENT DATE: 20201119
